FAERS Safety Report 8232045-8 (Version None)
Quarter: 2012Q1

REPORT INFORMATION
  Report Type: 
  Country: None (occurrence: None)
  Receive Date: 20120323
  Receipt Date: 20120315
  Transmission Date: 20120608
  Serious: Yes (Death)
  Sender: FDA-Public Use
  Company Number: JP-BRISTOL-MYERS SQUIBB COMPANY-16166845

PATIENT
  Age: 79 Year
  Sex: Female

DRUGS (17)
  1. ISOSORBIDE MONONITRATE [Concomitant]
  2. ORENCIA [Suspect]
     Indication: RHEUMATOID ARTHRITIS
     Dosage: 500MG:17MAY11,31MAY11,14JUN11,12JUL11,9AUG11
     Route: 041
     Dates: start: 20110517
  3. AMLODIPINE [Concomitant]
  4. MECOBALAMIN [Concomitant]
  5. SENNOSIDE A+B [Concomitant]
     Indication: CONSTIPATION
  6. NABUMETONE [Concomitant]
     Indication: RHEUMATOID ARTHRITIS
  7. VALSARTAN [Concomitant]
  8. FOLIC ACID [Concomitant]
     Indication: PROPHYLAXIS
  9. ETIZOLAM [Concomitant]
  10. SULFASALAZINE [Concomitant]
     Indication: RHEUMATOID ARTHRITIS
  11. RISEDRONATE SODIUM [Concomitant]
  12. ASCORBIC ACID [Concomitant]
  13. PROGRAF [Suspect]
     Indication: RHEUMATOID ARTHRITIS
     Dates: end: 20110101
  14. ASPIRIN [Concomitant]
  15. METHOTREXATE [Suspect]
     Indication: RHEUMATOID ARTHRITIS
     Dosage: 10.5MG/WEEK:21JAN11-28FEB11 10MG/WEEK:1MAR11-5SEP11
     Dates: start: 20110121, end: 20110905
  16. ATORVASTATIN CALCIUM [Concomitant]
  17. CALCIUM PANTOTHENATE [Concomitant]

REACTIONS (1)
  - INTERSTITIAL LUNG DISEASE [None]
